FAERS Safety Report 9224890 (Version 6)
Quarter: 2015Q2

REPORT INFORMATION
  Report Type: Spontaneous
  Country: US (occurrence: US)
  Receive Date: 20130411
  Receipt Date: 20150601
  Transmission Date: 20150821
  Serious: Yes (Hospitalization, Other)
  Sender: FDA-Public Use
  Company Number: US-PFIZER INC-2013110239

PATIENT
  Age: 38 Year
  Sex: Female
  Weight: 156 kg

DRUGS (28)
  1. REVATIO [Suspect]
     Active Substance: SILDENAFIL CITRATE
     Dosage: UNK
  2. FLOLAN [Suspect]
     Active Substance: EPOPROSTENOL SODIUM
     Dosage: UNK
  3. FLOLAN [Suspect]
     Active Substance: EPOPROSTENOL SODIUM
     Dosage: UNK
     Dates: start: 20150222
  4. FLOLAN [Suspect]
     Active Substance: EPOPROSTENOL SODIUM
     Dosage: (35NG/KG/MIN, CO)
     Dates: start: 20150222
  5. REMODULIN [Concomitant]
     Active Substance: TREPROSTINIL
     Dosage: UNK
  6. VENTAVIS [Concomitant]
     Active Substance: ILOPROST
     Dosage: UNK
  7. FLOLAN [Suspect]
     Active Substance: EPOPROSTENOL SODIUM
     Dosage: UNK
     Dates: start: 20150222
  8. FLOLAN [Suspect]
     Active Substance: EPOPROSTENOL SODIUM
     Dosage: UNK
     Dates: start: 20150222
  9. FLOLAN [Suspect]
     Active Substance: EPOPROSTENOL SODIUM
     Dosage: UNK
     Dates: start: 20050308
  10. FLOLAN [Suspect]
     Active Substance: EPOPROSTENOL SODIUM
     Indication: PULMONARY ARTERIAL HYPERTENSION
     Dosage: 40 NG/KG/MIN CONTINUOSLY (CONCENTRATION 105,000 NG/ML, PUMP RATE 86 ML/DAY, VIAL STRENGTH 1.5 MG)
     Route: 042
     Dates: start: 20140308
  11. LETAIRIS [Suspect]
     Active Substance: AMBRISENTAN
     Dosage: UNK
  12. THELIN [Concomitant]
     Dosage: UNK
  13. ADEMPAS [Concomitant]
     Active Substance: RIOCIGUAT
     Dosage: UNK
  14. PROSTACYCLIN [Concomitant]
     Active Substance: EPOPROSTENOL
     Dosage: UNK
  15. FLOLAN [Suspect]
     Active Substance: EPOPROSTENOL SODIUM
     Dosage: UNK ( (57 NG/KG/MIN, CONC. OF 90,000 NG/ML AND PUMP RATE OF 82 ML/DAY,1.5 MG VIAL STRENGTH)
     Dates: start: 20050309
  16. IMODIUM [Concomitant]
     Active Substance: LOPERAMIDE HYDROCHLORIDE
     Dosage: UNK
  17. FLOLAN [Suspect]
     Active Substance: EPOPROSTENOL SODIUM
     Dosage: UNK (35 NG/KG/MIN WITH A CONCENTRATION OF 90,000 NG/ML AND PUMP RATE OF 88 ML/DAY)
     Dates: start: 20050309
  18. TRACLEER [Concomitant]
     Active Substance: BOSENTAN\BOSENTAN MONOHYDRATE
     Dosage: UNK
  19. FLOLAN [Suspect]
     Active Substance: EPOPROSTENOL SODIUM
     Dosage: UNK (55 NG/KG/MIN WITH A CONC OF 90000 NG/ML, 1.5MG VIAL STRENGTH)
     Dates: start: 20050308
  20. FLOLAN [Suspect]
     Active Substance: EPOPROSTENOL SODIUM
     Dosage: UNK
     Dates: start: 20050222
  21. FLOLAN [Suspect]
     Active Substance: EPOPROSTENOL SODIUM
     Dosage: UNK 57NG/KG/MIN CONTINUOUSLY: CONC: 90,000 NG/ML; PUMP RATE: 82 ML/DAY; VIAL STRENGTH:1.5ML
     Route: 042
     Dates: start: 20050309
  22. FLOLAN [Suspect]
     Active Substance: EPOPROSTENOL SODIUM
     Dosage: UNK
     Dates: start: 2005, end: 201502
  23. LASIX [Concomitant]
     Active Substance: FUROSEMIDE
     Dosage: UNK
  24. FLOLAN [Suspect]
     Active Substance: EPOPROSTENOL SODIUM
     Dosage: UNK
     Dates: start: 20150222
  25. FLOLAN [Suspect]
     Active Substance: EPOPROSTENOL SODIUM
     Dosage: UNK
     Dates: start: 20150222
  26. FLOLAN [Suspect]
     Active Substance: EPOPROSTENOL SODIUM
     Dosage: UNK
     Dates: start: 20150222
  27. FLOLAN [Suspect]
     Active Substance: EPOPROSTENOL SODIUM
     Dosage: 35 NG/KG/MIN CONTINUOUSLY (CONCENTRATION 90,000 NG/ML, VIAL STREN
  28. FLOLAN [Suspect]
     Active Substance: EPOPROSTENOL SODIUM
     Dosage: UNK

REACTIONS (29)
  - Abdominal distension [Not Recovered/Not Resolved]
  - Rash pruritic [Unknown]
  - Dermatitis contact [Unknown]
  - Dyspnoea [Unknown]
  - Swelling [Unknown]
  - Hepatotoxicity [Unknown]
  - Lung disorder [Unknown]
  - Catheterisation cardiac [Unknown]
  - Nasal congestion [Unknown]
  - Pulmonary arterial hypertension [Not Recovered/Not Resolved]
  - Flushing [Not Recovered/Not Resolved]
  - Diarrhoea [Not Recovered/Not Resolved]
  - Rash [Not Recovered/Not Resolved]
  - Oedema [Not Recovered/Not Resolved]
  - Peripheral swelling [Unknown]
  - Rhinorrhoea [Unknown]
  - Ascites [Unknown]
  - Erythema [Not Recovered/Not Resolved]
  - Infertility female [Unknown]
  - Fluid retention [Not Recovered/Not Resolved]
  - Dyspepsia [Unknown]
  - Urticaria [Unknown]
  - Nasopharyngitis [Unknown]
  - Pain in jaw [Not Recovered/Not Resolved]
  - Gastrointestinal disorder [Unknown]
  - Fluid retention [Unknown]
  - Weight increased [Unknown]
  - Nervousness [Unknown]
  - Cough [Unknown]

NARRATIVE: CASE EVENT DATE: 20121113
